FAERS Safety Report 6502778-X (Version None)
Quarter: 2009Q4

REPORT INFORMATION
  Report Type: 
  Country: None (occurrence: None)
  Receive Date: 20091127
  Receipt Date: 20090831
  Transmission Date: 20100525
  Serious: No
  Sender: FDA-Public Use
  Company Number: 001644

PATIENT
  Sex: Male

DRUGS (3)
  1. LACOSAMIDE [Suspect]
     Indication: EPILEPSY
     Dosage: 400 MG QD, TOOK FOR 15 DAYS ORAL, ORAL
     Route: 048
  2. KEPPRA [Suspect]
     Indication: EPILEPSY
     Dosage: ORAL
     Route: 048
  3. LAMICTAL [Concomitant]

REACTIONS (2)
  - INAPPROPRIATE SCHEDULE OF DRUG ADMINISTRATION [None]
  - MYOCLONUS [None]
